FAERS Safety Report 7739047-6 (Version None)
Quarter: 2011Q3

REPORT INFORMATION
  Report Type: 
  Country: None (occurrence: None)
  Receive Date: 20110909
  Receipt Date: 20110829
  Transmission Date: 20111222
  Serious: No
  Sender: FDA-Public Use
  Company Number: US-BIOGENIDEC-2011BI033753

PATIENT
  Age: 49 Year
  Sex: Female

DRUGS (1)
  1. TYSABRI [Suspect]
     Indication: MULTIPLE SCLEROSIS
     Route: 042
     Dates: start: 20110407

REACTIONS (9)
  - HEADACHE [None]
  - ASPIRATION [None]
  - BAND SENSATION [None]
  - ALOPECIA [None]
  - MEMORY IMPAIRMENT [None]
  - VOMITING [None]
  - EYE OPERATION [None]
  - URINARY TRACT INFECTION [None]
  - VAGINAL INFECTION [None]
